FAERS Safety Report 22838309 (Version 2)
Quarter: 2023Q4

REPORT INFORMATION
  Report Type: Spontaneous
  Country: US (occurrence: US)
  Receive Date: 20230818
  Receipt Date: 20231114
  Transmission Date: 20240110
  Serious: Yes (Hospitalization)
  Sender: FDA-Public Use
  Company Number: US-AMRYT PHARMACEUTICALS DAC-AEGR006632

PATIENT
  Age: 33 Year
  Sex: Female
  Weight: 49.887 kg

DRUGS (18)
  1. MYALEPT [Suspect]
     Active Substance: METRELEPTIN
     Indication: Acquired generalised lipodystrophy
     Dosage: 5 MILLIGRAM (1 ML), BID
     Route: 058
  2. MYALEPT [Suspect]
     Active Substance: METRELEPTIN
     Dosage: 75 UNITS, BID
     Route: 058
  3. BACTERIOSTATIC WATER [Concomitant]
     Active Substance: WATER
     Indication: Product used for unknown indication
  4. APIDRA [Concomitant]
     Active Substance: INSULIN GLULISINE
     Indication: Diabetes mellitus
     Dosage: 200 UNITS /DAY SPLIT WITH MEALS
     Route: 058
  5. APIDRA [Concomitant]
     Active Substance: INSULIN GLULISINE
     Dosage: 60-80 UNIT, TID WITH MEALS
     Route: 058
  6. LANTUS [Concomitant]
     Active Substance: INSULIN GLARGINE
     Indication: Product used for unknown indication
  7. DEXAMETHASONE\NEOMYCIN SULFATE\POLYMYXIN B SULFATE [Concomitant]
     Active Substance: DEXAMETHASONE\NEOMYCIN SULFATE\POLYMYXIN B SULFATE
     Indication: Product used for unknown indication
  8. PROAIR HFA [Concomitant]
     Active Substance: ALBUTEROL SULFATE
     Indication: Product used for unknown indication
  9. FLUTICASONE PROPIONATE [Concomitant]
     Active Substance: FLUTICASONE PROPIONATE
     Indication: Product used for unknown indication
  10. INSULIN GLARGINE [Concomitant]
     Active Substance: INSULIN GLARGINE
     Indication: Product used for unknown indication
  11. CIPROFLOXACIN AND DEXAMETHASONE [Concomitant]
     Active Substance: CIPROFLOXACIN HYDROCHLORIDE\DEXAMETHASONE
     Indication: Product used for unknown indication
  12. TOUJEO [Concomitant]
     Active Substance: INSULIN GLARGINE
     Indication: Diabetes mellitus
     Dosage: 300 UNITS/ DAY SPLIT TO BID
     Route: 058
  13. TOUJEO [Concomitant]
     Active Substance: INSULIN GLARGINE
     Dosage: 130 UNITS, Q AM
  14. TOUJEO [Concomitant]
     Active Substance: INSULIN GLARGINE
     Dosage: 160 UNITS, QPM
  15. PIOGLITAZONE [Concomitant]
     Active Substance: PIOGLITAZONE
     Indication: Diabetes mellitus
     Dosage: 45 MILLIGRAM, QD
     Route: 048
  16. PIOGLITAZONE [Concomitant]
     Active Substance: PIOGLITAZONE
     Indication: Insulin resistance
  17. GEMFIBROZIL [Concomitant]
     Active Substance: GEMFIBROZIL
     Indication: Product used for unknown indication
     Dosage: 600 MILLIGRAM, BID
     Route: 048
  18. TYLENOL [Concomitant]
     Active Substance: ACETAMINOPHEN
     Indication: Product used for unknown indication
     Dosage: 650 MILLIGRAM, PRN, Q 4 HOURS
     Route: 048

REACTIONS (1)
  - Adnexa uteri cyst [Recovered/Resolved with Sequelae]

NARRATIVE: CASE EVENT DATE: 20230701
